FAERS Safety Report 6623636-6 (Version None)
Quarter: 2010Q1

REPORT INFORMATION
  Report Type: 
  Country: None (occurrence: None)
  Receive Date: 20100310
  Receipt Date: 20091110
  Transmission Date: 20100710
  Serious: No
  Sender: FDA-Public Use
  Company Number: US-BIOGENIDEC-2009BI036439

PATIENT
  Age: 36 Year
  Sex: Female

DRUGS (2)
  1. AVONEX [Suspect]
     Indication: MULTIPLE SCLEROSIS
     Route: 030
     Dates: start: 20080101, end: 20090201
  2. AVONEX [Suspect]
     Route: 030
     Dates: start: 20090901

REACTIONS (5)
  - ABASIA [None]
  - ALOPECIA [None]
  - CONTUSION [None]
  - FALL [None]
  - HYPOAESTHESIA [None]
